FAERS Safety Report 5404425-7 (Version None)
Quarter: 2007Q3

REPORT INFORMATION
  Report Type: 
  Country: None (occurrence: None)
  Receive Date: 20070713
  Receipt Date: 20070516
  Transmission Date: 20080115
  Serious: Yes (Hospitalization)
  Sender: FDA-Public Use
  Company Number: US-JNJFOC-20061204408

PATIENT
  Age: 33 Year
  Sex: Female
  Weight: 118.162 kg

DRUGS (3)
  1. ORTHO EVRA [Suspect]
     Indication: CONTRACEPTION
     Dosage: TRANSDERMAL
     Route: 062
     Dates: start: 20040525, end: 20050308
  2. ORTHO EVRA [Suspect]
     Indication: UTERINE LEIOMYOMA
     Dosage: TRANSDERMAL
     Route: 062
     Dates: start: 20040525, end: 20050308
  3. IRON (IRON) [Concomitant]

REACTIONS (3)
  - DEEP VEIN THROMBOSIS [None]
  - MENORRHAGIA [None]
  - PULMONARY EMBOLISM [None]
